FAERS Safety Report 18317895 (Version 7)
Quarter: 2022Q1

REPORT INFORMATION
  Report Type: Spontaneous
  Country: GB (occurrence: GB)
  Receive Date: 20200928
  Receipt Date: 20220224
  Transmission Date: 20220423
  Serious: Yes (Hospitalization, Other)
  Sender: FDA-Public Use
  Company Number: GB-VERTEX PHARMACEUTICALS-2020-018148

PATIENT
  Age: 45 Year
  Sex: Male

DRUGS (26)
  1. AZITHROMYCIN [Suspect]
     Active Substance: AZITHROMYCIN
     Indication: Cystic fibrosis
     Dosage: 250 MILLIGRAM, OD
     Route: 065
  2. ELEXACAFTOR\IVACAFTOR\TEZACAFTOR [Suspect]
     Active Substance: ELEXACAFTOR\IVACAFTOR\TEZACAFTOR
     Indication: Cystic fibrosis
     Dosage: UNK
     Route: 048
  3. KALYDECO [Suspect]
     Active Substance: IVACAFTOR
     Indication: Cystic fibrosis
     Dosage: 150 MG, 1X/DAY
     Route: 048
  4. KALYDECO [Suspect]
     Active Substance: IVACAFTOR
     Dosage: UNK
     Route: 048
  5. KALYDECO [Suspect]
     Active Substance: IVACAFTOR
     Dosage: MORNING DOSE
     Route: 065
  6. ELEXACAFTOR\IVACAFTOR\TEZACAFTOR [Suspect]
     Active Substance: ELEXACAFTOR\IVACAFTOR\TEZACAFTOR
     Indication: Cystic fibrosis
     Dosage: 2 DOSAGE FORM, TWO TIMES A DAY
     Route: 048
  7. ELEXACAFTOR\IVACAFTOR\TEZACAFTOR [Suspect]
     Active Substance: ELEXACAFTOR\IVACAFTOR\TEZACAFTOR
     Dosage: 1 DOSAGE FORM, ONCE A DAY
     Route: 065
  8. ELEXACAFTOR\IVACAFTOR\TEZACAFTOR [Suspect]
     Active Substance: ELEXACAFTOR\IVACAFTOR\TEZACAFTOR
     Dosage: UNK
     Route: 048
  9. URSO [Suspect]
     Active Substance: URSODIOL
     Indication: Hepatic necrosis
     Dosage: UNK
     Route: 065
  10. LEVOFLOXACIN [Suspect]
     Active Substance: LEVOFLOXACIN
     Indication: Product used for unknown indication
     Dosage: UNK
     Route: 065
  11. CALCIUM CARBONATE\CHOLECALCIFEROL [Concomitant]
     Active Substance: CALCIUM CARBONATE\CHOLECALCIFEROL
     Indication: Product used for unknown indication
     Dosage: UNK
     Route: 065
  12. CETIRIZINE [Concomitant]
     Active Substance: CETIRIZINE HYDROCHLORIDE
     Indication: Cystic fibrosis
     Dosage: UNK
     Route: 065
  13. CHOLECALCIFEROL [Concomitant]
     Active Substance: CHOLECALCIFEROL
     Indication: Product used for unknown indication
     Dosage: UNK
     Route: 065
  14. COLISTIN [Concomitant]
     Active Substance: COLISTIN
     Indication: Product used for unknown indication
     Dosage: UNK
     Route: 065
  15. CREON [Concomitant]
     Active Substance: PANCRELIPASE AMYLASE\PANCRELIPASE LIPASE\PANCRELIPASE PROTEASE
     Indication: Product used for unknown indication
     Dosage: UNK
     Route: 065
  16. DORNASE ALFA [Concomitant]
     Active Substance: DORNASE ALFA
     Indication: Product used for unknown indication
     Dosage: UNK
     Route: 065
  17. FLUTICASONE [Concomitant]
     Active Substance: FLUTICASONE
     Indication: Product used for unknown indication
     Dosage: UNK
     Route: 045
  18. INSULIN NOS [Concomitant]
     Active Substance: INSULIN NOS
     Indication: Cystic fibrosis
     Dosage: UNK
     Route: 065
  19. LANSOPRAZOLE [Concomitant]
     Active Substance: LANSOPRAZOLE
     Indication: Product used for unknown indication
     Dosage: UNK
     Route: 065
  20. LEVEMIR [Concomitant]
     Active Substance: INSULIN DETEMIR
     Indication: Product used for unknown indication
     Dosage: UNK
     Route: 065
  21. LORATADINE [Concomitant]
     Active Substance: LORATADINE
     Indication: Product used for unknown indication
     Dosage: UNK
     Route: 065
     Dates: start: 20200828, end: 20200828
  22. ALBUTEROL [Concomitant]
     Active Substance: ALBUTEROL
     Indication: Product used for unknown indication
     Dosage: UNK
     Route: 065
  23. SERETIDE [Concomitant]
     Active Substance: FLUTICASONE PROPIONATE\SALMETEROL XINAFOATE
     Indication: Product used for unknown indication
     Dosage: UNK
     Route: 065
  24. VITAMIN E [Concomitant]
     Active Substance: .ALPHA.-TOCOPHEROL
     Indication: Product used for unknown indication
     Dosage: UNK
     Route: 065
  25. TOCOPHEROL [Concomitant]
     Active Substance: TOCOPHEROL
     Indication: Product used for unknown indication
     Dosage: UNK
     Route: 065
  26. PULMOZYME [Concomitant]
     Active Substance: DORNASE ALFA
     Indication: Cystic fibrosis
     Dosage: UNK
     Route: 065

REACTIONS (10)
  - Dry eye [Recovered/Resolved]
  - Hepatic necrosis [Recovering/Resolving]
  - Respiratory disorder [Unknown]
  - Abdominal discomfort [Unknown]
  - Weight decreased [Unknown]
  - Exercise tolerance decreased [Unknown]
  - Forced expiratory volume decreased [Not Recovered/Not Resolved]
  - Aspartate aminotransferase increased [Not Recovered/Not Resolved]
  - Alanine aminotransferase increased [Not Recovered/Not Resolved]
  - Gamma-glutamyltransferase increased [Not Recovered/Not Resolved]

NARRATIVE: CASE EVENT DATE: 20200110
